FAERS Safety Report 20634035 (Version 1)
Quarter: 2022Q1

REPORT INFORMATION
  Report Type: Report from Study
  Country: GB (occurrence: GB)
  Receive Date: 20220324
  Receipt Date: 20220324
  Transmission Date: 20220423
  Serious: Yes (Life-Threatening, Disabling, Other)
  Sender: FDA-Public Use
  Company Number: GB-BRISTOL-MYERS SQUIBB COMPANY-2022-011034

PATIENT
  Age: 45 Year
  Sex: Female

DRUGS (19)
  1. CYCLOPHOSPHAMIDE [Suspect]
     Active Substance: CYCLOPHOSPHAMIDE
     Indication: Follicular lymphoma
     Route: 042
     Dates: start: 20211028, end: 20211030
  2. FLUDARABINE [Suspect]
     Active Substance: FLUDARABINE PHOSPHATE
     Indication: Follicular lymphoma
     Route: 042
     Dates: start: 20211028, end: 20211030
  3. ACYCLOVIR [Concomitant]
     Active Substance: ACYCLOVIR
     Indication: Antiviral prophylaxis
     Dosage: 400 MG
     Route: 048
     Dates: start: 201910
  4. CALCIUM\CHOLECALCIFEROL [Concomitant]
     Active Substance: CALCIUM\CHOLECALCIFEROL
     Indication: Prophylaxis
     Dosage: 1 TABLET
     Route: 048
     Dates: start: 201910
  5. COLISTIMETHATE SODIUM [Concomitant]
     Active Substance: COLISTIMETHATE SODIUM
     Indication: Pseudomonas infection
     Dosage: 2 MG/MIU
     Route: 055
     Dates: start: 202008
  6. COTRIMOXAZOLE [Concomitant]
     Active Substance: SULFAMETHOXAZOLE\TRIMETHOPRIM
     Indication: Antibiotic prophylaxis
     Dosage: 400 MG
     Route: 048
     Dates: start: 201910
  7. BENZYDAMINE [Concomitant]
     Active Substance: BENZYDAMINE
     Indication: Prophylaxis
     Dosage: 1 SPRAY?FREQUENCY : PRN
     Route: 048
     Dates: start: 202008
  8. ISAVUCONAZOLE [Concomitant]
     Active Substance: ISAVUCONAZOLE
     Indication: Antifungal prophylaxis
     Dosage: 100 MG
     Route: 048
     Dates: start: 201910
  9. LANSOPRAZOLE [Concomitant]
     Active Substance: LANSOPRAZOLE
     Indication: Gastrooesophageal reflux prophylaxis
     Dosage: 300 MG
     Route: 048
     Dates: start: 202005
  10. POLYETHYLENE GLYCOL 3350\POTASSIUM CHLORIDE\SODIUM BICARBONATE\SODIUM [Concomitant]
     Active Substance: POLYETHYLENE GLYCOL 3350\POTASSIUM CHLORIDE\SODIUM BICARBONATE\SODIUM CHLORIDE
     Indication: Constipation prophylaxis
     Dosage: 1 SACHET?FREQUENCY : PRN
     Route: 048
  11. PROGESTERONE [Concomitant]
     Active Substance: PROGESTERONE
     Indication: Hormone replacement therapy
     Dosage: 100 MG
     Route: 048
     Dates: start: 202106
  12. PROGESTERONE [Concomitant]
     Active Substance: PROGESTERONE
     Indication: Prophylaxis
  13. ALENDRONIC ACID [Concomitant]
     Active Substance: ALENDRONIC ACID
     Indication: Osteoporosis prophylaxis
     Dosage: 1 TABLET
     Route: 048
     Dates: start: 20201221
  14. DALTEPARIN [Concomitant]
     Active Substance: DALTEPARIN
     Indication: Embolism venous
     Dosage: 5000 IU
     Route: 048
     Dates: start: 20201223
  15. ENTECAVIR [Concomitant]
     Active Substance: ENTECAVIR
     Indication: Antiviral prophylaxis
     Dosage: 500 UG
     Route: 048
     Dates: start: 20210928
  16. GCSF INJECTIONS [Concomitant]
     Indication: Prophylaxis
     Dosage: 300 MG
     Route: 058
     Dates: start: 20211124
  17. GCSF INJECTIONS [Concomitant]
     Indication: Platelet count decreased
  18. LEVETIRACETAM [Concomitant]
     Active Substance: LEVETIRACETAM
     Indication: Posterior reversible encephalopathy syndrome
     Dosage: 500 MG
     Route: 048
     Dates: start: 20201217
  19. TRAMADOL [Concomitant]
     Active Substance: TRAMADOL
     Indication: Prophylaxis
     Dosage: 1 TABLET?FREQUENCY : PRN
     Route: 048
     Dates: start: 20211019, end: 202110

REACTIONS (1)
  - Human polyomavirus infection [Not Recovered/Not Resolved]

NARRATIVE: CASE EVENT DATE: 20220310
